FAERS Safety Report 7980799-8 (Version None)
Quarter: 2011Q4

REPORT INFORMATION
  Report Type: 
  Country: None (occurrence: None)
  Receive Date: 20111214
  Receipt Date: 20111110
  Transmission Date: 20120403
  Serious: No
  Sender: FDA-Public Use
  Company Number: US-BAUSCH-2011BL007904

PATIENT
  Age: 4 Year
  Sex: Male

DRUGS (1)
  1. BESIVANCE [Suspect]
     Indication: CONJUNCTIVITIS BACTERIAL
     Route: 047
     Dates: start: 20111101, end: 20111101

REACTIONS (4)
  - OCULAR HYPERAEMIA [None]
  - EYE SWELLING [None]
  - EYE PAIN [None]
  - CONDITION AGGRAVATED [None]
